FAERS Safety Report 4263280-1 (Version None)
Quarter: 2004Q1

REPORT INFORMATION
  Report Type: 
  Country: None (occurrence: None)
  Receive Date: 20040104
  Receipt Date: 20040104
  Transmission Date: 20041129
  Serious: Yes (Other)
  Sender: FDA-Public Use
  Company Number: None

PATIENT
  Age: 28 Year
  Sex: Female
  Weight: 63.5036 kg

DRUGS (1)
  1. PLAN B [Suspect]
     Indication: CONTRACEPTION
     Dosage: 2 PILLS 24 HOURS ORAL
     Route: 048
     Dates: start: 20031101, end: 20031101

REACTIONS (6)
  - DERMAL CYST [None]
  - DYSURIA [None]
  - MUSCLE CRAMP [None]
  - POLYMENORRHOEA [None]
  - UTERINE SPASM [None]
  - VAGINAL DISORDER [None]
